FAERS Safety Report 5616697-4 (Version None)
Quarter: 2008Q1

REPORT INFORMATION
  Report Type: 
  Country: None (occurrence: None)
  Receive Date: 20080207
  Receipt Date: 20080130
  Transmission Date: 20080703
  Serious: Yes (Hospitalization)
  Sender: FDA-Public Use
  Company Number: PHHO2007GB20232

PATIENT
  Age: 58 Year
  Sex: Female
  Weight: 69 kg

DRUGS (9)
  1. CERTICAN [Suspect]
     Indication: RENAL TRANSPLANT
     Dosage: 720 MG, QD
     Route: 048
     Dates: start: 20061020
  2. CERTICAN [Suspect]
     Dosage: 360 MG, BID
     Route: 048
  3. NEORAL [Suspect]
     Indication: RENAL TRANSPLANT
     Dosage: 75 MG, QD
     Route: 048
     Dates: start: 20061020
  4. NEORAL [Suspect]
     Dosage: 75 MG, BID
     Route: 048
  5. PREDNISOLONE [Concomitant]
     Dosage: 3 MG / DAY
     Route: 048
  6. SIMVASTATIN [Concomitant]
     Dosage: 10 MG / DAY
     Route: 048
  7. ASPIRIN [Concomitant]
     Dosage: 75 MG / DAY
     Route: 048
  8. DILTIAZEM [Concomitant]
     Dosage: 120 MG / DAY
     Route: 048
  9. VALGANCICLOVIR HCL [Suspect]

REACTIONS (25)
  - BACK PAIN [None]
  - COUGH [None]
  - CYTOMEGALOVIRUS VIRAEMIA [None]
  - DEHYDRATION [None]
  - DEMYELINATING POLYNEUROPATHY [None]
  - DIARRHOEA [None]
  - DISEASE PROGRESSION [None]
  - DYSSTASIA [None]
  - DYSURIA [None]
  - ESCHERICHIA URINARY TRACT INFECTION [None]
  - FATIGUE [None]
  - GAIT DISTURBANCE [None]
  - HYPONATRAEMIA [None]
  - HYPOTENSION [None]
  - LIVER FUNCTION TEST ABNORMAL [None]
  - LOWER RESPIRATORY TRACT INFECTION [None]
  - MALAISE [None]
  - MUSCULAR WEAKNESS [None]
  - MYOPATHY [None]
  - PAIN IN EXTREMITY [None]
  - PARAESTHESIA [None]
  - RESPIRATORY DISORDER [None]
  - URINARY TRACT INFECTION [None]
  - URINE ABNORMALITY [None]
  - VOMITING [None]
